FAERS Safety Report 16063281 (Version 2)
Quarter: 2019Q2

REPORT INFORMATION
  Report Type: Spontaneous
  Country: US (occurrence: US)
  Receive Date: 20190312
  Receipt Date: 20190522
  Transmission Date: 20190711
  Serious: Yes (Other)
  Sender: FDA-Public Use
  Company Number: US-BAUSCH-BL-2019-007066

PATIENT
  Age: 71 Year
  Sex: Female
  Weight: 48.58 kg

DRUGS (7)
  1. UCERIS [Suspect]
     Active Substance: BUDESONIDE
     Dosage: TAPERED DOWN TO ONCE DAILY
     Route: 054
     Dates: start: 2018, end: 2018
  2. UCERIS [Suspect]
     Active Substance: BUDESONIDE
     Dosage: RESTARTED AFTER FLARE UP
     Route: 054
     Dates: start: 201801, end: 2018
  3. UCERIS [Suspect]
     Active Substance: BUDESONIDE
     Route: 054
     Dates: start: 2018
  4. UCERIS [Suspect]
     Active Substance: BUDESONIDE
     Indication: COLITIS ULCERATIVE
     Dosage: 1 METERED DOSE TWICE DAILY FOR 2 WEEKS
     Route: 054
     Dates: start: 2017, end: 2017
  5. UCERIS [Suspect]
     Active Substance: BUDESONIDE
     Dosage: 1 METERED DOSE ONCE DAILY FOR 4 WEEKS
     Route: 054
     Dates: start: 2017
  6. LIALDA [Concomitant]
     Active Substance: MESALAMINE
     Indication: COLITIS ULCERATIVE
     Route: 048
  7. UCERIS [Suspect]
     Active Substance: BUDESONIDE
     Indication: COLITIS ULCERATIVE
     Route: 048
     Dates: start: 2017

REACTIONS (2)
  - Colitis ulcerative [Recovered/Resolved]
  - Intentional product use issue [Unknown]

NARRATIVE: CASE EVENT DATE: 201801
